FAERS Safety Report 6253596-1 (Version None)
Quarter: 2009Q3

REPORT INFORMATION
  Report Type: 
  Country: None (occurrence: None)
  Receive Date: 20090701
  Receipt Date: 20090623
  Transmission Date: 20100115
  Serious: Yes (Hospitalization)
  Sender: FDA-Public Use
  Company Number: JP-JNJCH-2009015081

PATIENT
  Sex: Male

DRUGS (4)
  1. CETIRIZINE HYDROCHLORIDE [Suspect]
     Indication: ECZEMA
     Dosage: TEXT:10 MG
     Route: 048
     Dates: start: 20090521, end: 20090521
  2. BETAMETHASONE BUTYRATE PROPIONATE [Concomitant]
     Indication: ERYTHEMA
     Dosage: TEXT:1 G
     Route: 061
     Dates: start: 20090521, end: 20090521
  3. BETAMETHASONE BUTYRATE PROPIONATE [Concomitant]
     Indication: PRURITUS
  4. UREA [Concomitant]
     Indication: DRY SKIN
     Dosage: TEXT:1 G
     Route: 061
     Dates: start: 20090521, end: 20090521

REACTIONS (3)
  - ANAPHYLACTIC REACTION [None]
  - MOBILITY DECREASED [None]
  - MUSCULOSKELETAL DISCOMFORT [None]
